FAERS Safety Report 7442595-X (Version None)
Quarter: 2011Q2

REPORT INFORMATION
  Report Type: 
  Country: None (occurrence: None)
  Receive Date: 20110428
  Receipt Date: 20110420
  Transmission Date: 20111010
  Serious: Yes (Other)
  Sender: FDA-Public Use
  Company Number: PHHY2011US30317

PATIENT
  Sex: Female

DRUGS (3)
  1. GILENYA [Suspect]
     Indication: MULTIPLE SCLEROSIS
     Dosage: 0.5 MG, QD
     Route: 048
     Dates: start: 20110111
  2. ANTIBIOTICS [Concomitant]
     Dosage: UNK
  3. FLUOXETINE [Concomitant]
     Dosage: 20 MG, QD
     Route: 048

REACTIONS (3)
  - EYE INFECTION TOXOPLASMAL [None]
  - VISUAL IMPAIRMENT [None]
  - VISION BLURRED [None]
